FAERS Safety Report 12210151 (Version 5)
Quarter: 2018Q1

REPORT INFORMATION
  Report Type: Spontaneous
  Country: US (occurrence: US)
  Receive Date: 20160325
  Receipt Date: 20180215
  Transmission Date: 20180508
  Serious: Yes (Hospitalization)
  Sender: FDA-Public Use
  Company Number: US-PFIZER INC-2016144395

PATIENT
  Age: 70 Year
  Sex: Female
  Weight: 85.99 kg

DRUGS (2)
  1. GABAPENTIN. [Suspect]
     Active Substance: GABAPENTIN
     Indication: NEUROPATHY PERIPHERAL
     Dosage: 900 MG (600MG, TAKE 1 AND 1/2 TABLET), 3X/DAY
     Route: 048
     Dates: end: 201507
  2. GABAPENTIN. [Suspect]
     Active Substance: GABAPENTIN
     Dosage: 900 MG, 3X/DAY (600 MG- 11/2 TBS, 3 X DAY)
     Dates: start: 201410, end: 201507

REACTIONS (7)
  - Swelling [Recovered/Resolved]
  - Abdominal distension [Unknown]
  - Drug hypersensitivity [Unknown]
  - Peripheral swelling [Unknown]
  - Drug ineffective for unapproved indication [Unknown]
  - Weight increased [Unknown]
  - Joint swelling [Unknown]

NARRATIVE: CASE EVENT DATE: 201410
